FAERS Safety Report 21985713 (Version 1)
Quarter: 2023Q1

REPORT INFORMATION
  Report Type: Spontaneous
  Country: US (occurrence: US)
  Receive Date: 20230213
  Receipt Date: 20230213
  Transmission Date: 20230417
  Serious: No
  Sender: FDA-Public Use
  Company Number: US-GLAXOSMITHKLINE-USCH2023006297

PATIENT
  Sex: Female

DRUGS (1)
  1. NICODERM CQ [Suspect]
     Active Substance: NICOTINE
     Indication: Drug withdrawal maintenance therapy
     Dosage: UNK

REACTIONS (2)
  - Application site irritation [Unknown]
  - Application site pruritus [Unknown]

NARRATIVE: CASE EVENT DATE: 20230201
